FAERS Safety Report 4452219-1 (Version None)
Quarter: 2004Q3

REPORT INFORMATION
  Report Type: 
  Country: None (occurrence: None)
  Receive Date: 20040917
  Receipt Date: 20040915
  Transmission Date: 20050211
  Serious: Yes (Other)
  Sender: FDA-Public Use
  Company Number: PHNU2004DE03243

PATIENT
  Age: 46 Year
  Sex: Female

DRUGS (1)
  1. TRILEPTAL [Suspect]
     Dosage: 1200MG/DAY
     Route: 048
     Dates: start: 20040820, end: 20040913

REACTIONS (3)
  - ANAEMIA [None]
  - HYPONATRAEMIA [None]
  - LEUKOPENIA [None]
